FAERS Safety Report 25729567 (Version 1)
Quarter: 2025Q3

REPORT INFORMATION
  Report Type: Spontaneous
  Country: CA (occurrence: None)
  Receive Date: 20250827
  Receipt Date: 20250827
  Transmission Date: 20251020
  Serious: Yes (Other)
  Sender: ORION
  Company Number: CA-Orion Corporation ORION PHARMA-TREX2025-0136

PATIENT
  Age: 47 Year
  Sex: Female
  Weight: 48.5 kg

DRUGS (5)
  1. METHOTREXATE [Suspect]
     Active Substance: METHOTREXATE
     Indication: Product used for unknown indication
  2. METHOTREXATE [Suspect]
     Active Substance: METHOTREXATE
     Indication: Product used for unknown indication
  3. CHARCOAL ACTIVATED [Concomitant]
     Active Substance: ACTIVATED CHARCOAL
     Indication: Sjogren^s syndrome
  4. ERELZI [Concomitant]
     Active Substance: ETANERCEPT-SZZS
  5. RUXIENCE [Concomitant]
     Active Substance: RITUXIMAB-PVVR
     Indication: Rheumatoid arthritis

REACTIONS (3)
  - Drug intolerance [Unknown]
  - Fatigue [Unknown]
  - Anaemia [Unknown]
